FAERS Safety Report 13102758 (Version 1)
Quarter: 2017Q1

REPORT INFORMATION
  Report Type: Spontaneous
  Country: US (occurrence: US)
  Receive Date: 20170110
  Receipt Date: 20170110
  Transmission Date: 20170428
  Serious: No
  Sender: FDA-Public Use
  Company Number: US-NAVIDEA BIOPHARMACEUTICALS-NVUS1600-16-00025

PATIENT
  Age: 69 Year
  Sex: Female

DRUGS (1)
  1. LYMPHOSEEK [Suspect]
     Active Substance: TECHNETIUM TC-99M TILMANOCEPT
     Indication: LYMPHATIC MAPPING
     Dosage: 50 MCG
     Route: 023
     Dates: start: 20161101, end: 20161101

REACTIONS (1)
  - Injection site pain [Recovered/Resolved]

NARRATIVE: CASE EVENT DATE: 20161101
